FAERS Safety Report 6112877-2 (Version None)
Quarter: 2009Q1

REPORT INFORMATION
  Report Type: 
  Country: None (occurrence: None)
  Receive Date: 20090312
  Receipt Date: 20090303
  Transmission Date: 20090719
  Serious: Yes (Other)
  Sender: FDA-Public Use
  Company Number: PHHY2009IT08254

PATIENT
  Sex: Female

DRUGS (2)
  1. ZOMETA [Suspect]
     Indication: METASTASES TO BONE
     Dosage: 4 MG/ CYCLE
     Route: 042
     Dates: start: 20071228, end: 20080827
  2. FEMARA [Concomitant]
     Dosage: 2.5 MG
     Dates: start: 20071228, end: 20090302

REACTIONS (2)
  - LASER THERAPY [None]
  - OSTEONECROSIS [None]
